FAERS Safety Report 17153020 (Version 1)
Quarter: 2019Q4

REPORT INFORMATION
  Report Type: Report from Study
  Country: US (occurrence: US)
  Receive Date: 20191213
  Receipt Date: 20191213
  Transmission Date: 20200122
  Serious: No
  Sender: FDA-Public Use
  Company Number: NVSC2019US025175

PATIENT
  Sex: Female

DRUGS (1)
  1. MAYZENT [Suspect]
     Active Substance: SIPONIMOD
     Indication: MULTIPLE SCLEROSIS
     Dosage: 2 MG, QD
     Route: 048
     Dates: start: 20190626

REACTIONS (5)
  - Musculoskeletal stiffness [Not Recovered/Not Resolved]
  - Chills [Unknown]
  - Drug ineffective [Unknown]
  - Asthenia [Not Recovered/Not Resolved]
  - Neck pain [Unknown]
